FAERS Safety Report 4632321-1 (Version None)
Quarter: 2005Q2

REPORT INFORMATION
  Report Type: 
  Country: None (occurrence: None)
  Receive Date: 20050411
  Receipt Date: 20050331
  Transmission Date: 20051028
  Serious: Yes (Other)
  Sender: FDA-Public Use
  Company Number: JP-MERCK-0504USA00440

PATIENT
  Age: 81 Year
  Sex: Female

DRUGS (3)
  1. PEPCID [Suspect]
     Route: 048
     Dates: start: 20050314, end: 20050328
  2. LORNOXICAM [Concomitant]
     Route: 048
     Dates: start: 20050314
  3. CLARITIN [Concomitant]
     Route: 048
     Dates: start: 20050314

REACTIONS (1)
  - FLATULENCE [None]
